FAERS Safety Report 7866950-9 (Version None)
Quarter: 2011Q4

REPORT INFORMATION
  Report Type: 
  Country: None (occurrence: None)
  Receive Date: 20111028
  Receipt Date: 20111020
  Transmission Date: 20120403
  Serious: Yes (Death)
  Sender: FDA-Public Use
  Company Number: GB-ROCHE-GNE320987

PATIENT
  Sex: Female

DRUGS (4)
  1. AVASTIN [Concomitant]
  2. BENDROFLUMETHIAZIDE [Concomitant]
  3. ASPIRIN [Concomitant]
  4. LUCENTIS [Suspect]
     Indication: CHOROIDAL NEOVASCULARISATION
     Route: 050
     Dates: start: 20090611

REACTIONS (1)
  - DEATH [None]
